FAERS Safety Report 4282148-8 (Version None)
Quarter: 2004Q1

REPORT INFORMATION
  Report Type: 
  Country: None (occurrence: None)
  Receive Date: 20040107
  Receipt Date: 20031125
  Transmission Date: 20041129
  Serious: No
  Sender: FDA-Public Use
  Company Number: 234139

PATIENT
  Age: 40 Year
  Sex: Male
  Weight: 109.5 kg

DRUGS (3)
  1. NOVOLOG [Suspect]
     Indication: DIABETES MELLITUS INSULIN-DEPENDENT
     Dosage: WITH MEALS, SUBCUTANEOUS
     Route: 058
  2. LANTUS [Concomitant]
  3. ACETYLSALICYLIC ACID SRT [Concomitant]

REACTIONS (3)
  - BLOOD GLUCOSE DECREASED [None]
  - FATIGUE [None]
  - NEUROGLYCOPENIA [None]
